FAERS Safety Report 8327678-4 (Version None)
Quarter: 2012Q2

REPORT INFORMATION
  Report Type: 
  Country: None (occurrence: None)
  Receive Date: 20120502
  Receipt Date: 20120423
  Transmission Date: 20120825
  Serious: Yes (Hospitalization)
  Sender: FDA-Public Use
  Company Number: US-BAYER-2011-111986

PATIENT
  Age: 35 Year
  Sex: Female
  Weight: 102.95 kg

DRUGS (19)
  1. HYDROCORTISONE CREAM [Concomitant]
     Indication: RASH
     Dosage: 1 %, UNK
     Route: 061
     Dates: start: 20080404
  2. TRAMADOL HCL [Concomitant]
     Dosage: 50 MG EVERY 4 TO 6 HOURS AS NEEDED
     Route: 048
  3. SOMA [Concomitant]
  4. PROTONIX [Concomitant]
  5. WELLBUTRIN XL [Concomitant]
     Indication: EX-TOBACCO USER
     Dosage: 150 MG, QD
     Route: 048
     Dates: start: 20080101, end: 20080301
  6. IBUPROFEN [Concomitant]
     Dosage: UNK
     Dates: start: 20080316, end: 20080411
  7. HYDROCODONE BITARTRATE [Concomitant]
  8. MINOCYCLINE HCL [Concomitant]
     Indication: ACNE
     Dosage: UNK
     Route: 048
     Dates: start: 20080201, end: 20080301
  9. HYDROCODONE BITARTRATE + ACETAMINOPHEN [Concomitant]
     Indication: PAIN
     Dosage: 1-2 5/500 MG TABLETS, Q4HR
     Route: 048
     Dates: start: 20080316
  10. ANUSOL HC-1 [Concomitant]
     Dosage: 1 %, UNK
     Route: 061
     Dates: start: 20080404
  11. VICODIN [Concomitant]
  12. YAZ [Suspect]
     Indication: ACNE
  13. CARISPODOL [Concomitant]
     Indication: MUSCLE RELAXANT THERAPY
     Dosage: 350 MG, QID
     Route: 048
     Dates: start: 20080316
  14. ZOVIRAX [Concomitant]
     Indication: ORAL HERPES
     Dosage: 5 %, UNK
     Route: 061
     Dates: start: 20080404
  15. CONTRACEPTIVES NOS [Concomitant]
  16. DIFFERIN [Concomitant]
     Dosage: 0.1 %, UNK
     Route: 061
     Dates: start: 20080415
  17. YAZ [Suspect]
     Indication: DYSMENORRHOEA
     Dosage: UNK
     Route: 048
     Dates: start: 20080110, end: 20080517
  18. MULTI MEGA MINERALS TABS-VIBE [Concomitant]
     Dosage: UNK
     Dates: start: 20080201
  19. KETEROLAC [Concomitant]
     Dosage: 10 MG EVERY 6 HOURS AS NEEDED
     Route: 048

REACTIONS (13)
  - DEEP VEIN THROMBOSIS [None]
  - PARAESTHESIA [None]
  - ACTIVITIES OF DAILY LIVING IMPAIRED [None]
  - ANXIETY [None]
  - OEDEMA PERIPHERAL [None]
  - ARTHRALGIA [None]
  - JOINT SWELLING [None]
  - DYSSTASIA [None]
  - EMOTIONAL DISTRESS [None]
  - VEIN DISORDER [None]
  - HYPOAESTHESIA [None]
  - GAIT DISTURBANCE [None]
  - PAIN [None]
